FAERS Safety Report 20296281 (Version 3)
Quarter: 2022Q1

REPORT INFORMATION
  Report Type: Spontaneous
  Country: US (occurrence: US)
  Receive Date: 20220105
  Receipt Date: 20220112
  Transmission Date: 20220423
  Serious: No
  Sender: FDA-Public Use
  Company Number: US-TAKEDA-2022TUS000301

PATIENT
  Age: 36 Year
  Sex: Male
  Weight: 74.6 kg

DRUGS (4)
  1. RIXUBIS [Suspect]
     Active Substance: COAGULATION FACTOR IX RECOMBINANT HUMAN
     Indication: Factor IX deficiency
     Dosage: 1086 INTERNATIONAL UNIT, 5/WEEK
     Route: 042
  2. RIXUBIS [Suspect]
     Active Substance: COAGULATION FACTOR IX RECOMBINANT HUMAN
     Dosage: 3250 INTERNATIONAL UNIT, 5/WEEK
     Route: 042
  3. RIXUBIS [Suspect]
     Active Substance: COAGULATION FACTOR IX RECOMBINANT HUMAN
     Dosage: 4000 INTERNATIONAL UNIT, 5/WEEK
     Route: 042
  4. RIXUBIS [Suspect]
     Active Substance: COAGULATION FACTOR IX RECOMBINANT HUMAN
     Dosage: 4000 INTERNATIONAL UNIT, 5/WEEK
     Route: 042

REACTIONS (5)
  - Infusion related reaction [Recovering/Resolving]
  - Dizziness [Recovering/Resolving]
  - Feeling hot [Unknown]
  - Injection site swelling [Recovering/Resolving]
  - Injection site pain [Recovering/Resolving]

NARRATIVE: CASE EVENT DATE: 20220102
